FAERS Safety Report 19467463 (Version 1)
Quarter: 2021Q2

REPORT INFORMATION
  Report Type: Spontaneous
  Country: US (occurrence: US)
  Receive Date: 20210627
  Receipt Date: 20210627
  Transmission Date: 20210717
  Serious: No
  Sender: FDA-Public Use
  Company Number: None

PATIENT
  Age: 73 Year
  Sex: Female
  Weight: 72 kg

DRUGS (10)
  1. BUPROPION. [Concomitant]
     Active Substance: BUPROPION
  2. COENZYME Q10 [Concomitant]
     Active Substance: DIETARY SUPPLEMENT\UBIDECARENONE
  3. CURCUMIN  WITH GINGER [Concomitant]
  4. VITAMIN E [Concomitant]
     Active Substance: .ALPHA.-TOCOPHEROL
  5. VITAMIN C [Concomitant]
     Active Substance: ASCORBIC ACID
  6. TUMERIC [Concomitant]
     Active Substance: HERBALS\TURMERIC
  7. BUPROPION 150MG SR [Suspect]
     Active Substance: BUPROPION
     Indication: DEPRESSION
     Dosage: QUANTITY:1.5 TABLET(S);OTHER FREQUENCY:1.5 TABLETS DAILY;?
     Route: 048
     Dates: start: 20210521, end: 20210620
  8. VALACYCLOVIR [Concomitant]
     Active Substance: VALACYCLOVIR HYDROCHLORIDE
  9. MULTI?VITAMIN [Concomitant]
     Active Substance: .ALPHA.-TOCOPHEROL ACETATE, DL-\ASCORBIC ACID\CYANOCOBALAMIN\FLUORIDE ION\FOLIC ACID\NIACIN\PYRIDOXINE\RIBOFLAVIN\THIAMINE\VITAMIN A\VITAMIN D
  10. VITAMIN D3 [Concomitant]
     Active Substance: CHOLECALCIFEROL

REACTIONS (7)
  - Diarrhoea [None]
  - Renal pain [None]
  - Abnormal dreams [None]
  - Product substitution issue [None]
  - Tinnitus [None]
  - Back pain [None]
  - Therapy change [None]

NARRATIVE: CASE EVENT DATE: 20210619
